FAERS Safety Report 5195181-9 (Version None)
Quarter: 2006Q4

REPORT INFORMATION
  Report Type: 
  Country: None (occurrence: None)
  Receive Date: 20061229
  Receipt Date: 20061220
  Transmission Date: 20070319
  Serious: Yes (Other)
  Sender: FDA-Public Use
  Company Number: US-PFIZER INC-2006156105

PATIENT
  Age: 89 Year
  Sex: Female

DRUGS (1)
  1. LATANOPROST [Suspect]
     Route: 047

REACTIONS (2)
  - CHOROIDAL DETACHMENT [None]
  - POST PROCEDURAL COMPLICATION [None]
